FAERS Safety Report 7910462-0 (Version None)
Quarter: 2011Q4

REPORT INFORMATION
  Report Type: 
  Country: None (occurrence: None)
  Receive Date: 20111111
  Receipt Date: 20111101
  Transmission Date: 20120403
  Serious: Yes (Hospitalization)
  Sender: FDA-Public Use
  Company Number: PHHY2011BR097400

PATIENT
  Sex: Female

DRUGS (9)
  1. EXELON [Suspect]
     Dosage: 9.5 MG, (18MG/10CM2, 1 PATCH A DAY)
     Route: 062
  2. CITALOPRAM HYDROBROMIDE [Concomitant]
     Dosage: 1 DF, BID
     Route: 048
  3. SOMALGIN [Concomitant]
     Indication: THROMBOSIS
     Dosage: 1 DF, QD
     Route: 048
     Dates: start: 20110501
  4. FLUTICASONE PROPIONATE/SALMETEROL [Concomitant]
     Indication: BRONCHIECTASIS
     Dosage: 50150 MG, UNK
  5. EXELON [Suspect]
     Indication: NERVOUS SYSTEM DISORDER
     Dosage: 4.6 MG, (9MG/5CM2, 1 PATCH A DAY)
     Route: 062
  6. LIPITOR [Concomitant]
     Indication: BLOOD CHOLESTEROL ABNORMAL
     Dosage: 1 DF, QD
     Route: 048
  7. EXELON [Suspect]
     Indication: NERVOUS SYSTEM DISORDER
     Dosage: 4 ML/ DAY
     Route: 048
  8. PANTOPRAZOLE [Concomitant]
     Indication: GASTRITIS
     Dosage: 1 DF, QD
     Route: 048
  9. MEMANTINE HYDROCHLORIDE [Concomitant]
     Indication: NERVOUS SYSTEM DISORDER
     Dosage: 1 DF, BID
     Route: 048

REACTIONS (1)
  - ACUTE PULMONARY OEDEMA [None]
